FAERS Safety Report 16612732 (Version 1)
Quarter: 2019Q3

REPORT INFORMATION
  Report Type: Spontaneous
  Country: US (occurrence: US)
  Receive Date: 20190722
  Receipt Date: 20190722
  Transmission Date: 20191004
  Serious: Yes (Other)
  Sender: FDA-Public Use
  Company Number: None

PATIENT
  Age: 57 Year
  Sex: Female
  Weight: 72 kg

DRUGS (9)
  1. MULTIVITAMIN + MULTIMINERAL [Concomitant]
  2. LYRICA [Concomitant]
     Active Substance: PREGABALIN
  3. CLONAZEPAM. [Concomitant]
     Active Substance: CLONAZEPAM
  4. AIMOVIG [Suspect]
     Active Substance: ERENUMAB-AOOE
     Indication: MIGRAINE
     Dosage: ?          QUANTITY:1 INJECTION(S);OTHER FREQUENCY:PER MONTH;?
     Route: 058
     Dates: start: 20190507, end: 20190606
  5. VITAMIN B COMPLEX [Concomitant]
     Active Substance: CYANOCOBALAMIN\DEXPANTHENOL\NIACINAMIDE\PYRIDOXINE HYDROCHLORIDE\RIBOFLAVIN 5^-PHOSPHATE SODIUM\THIAMINE HYDROCHLORIDE\VITAMIN B COMPLEX
  6. ESCITALOPRAM [Concomitant]
     Active Substance: ESCITALOPRAM OXALATE
  7. TYLENOL EXTRA STRENGTH [Concomitant]
     Active Substance: ACETAMINOPHEN
  8. PROBIOTIC [Concomitant]
     Active Substance: PROBIOTICS NOS
  9. VOLTAREN [Concomitant]
     Active Substance: DICLOFENAC SODIUM

REACTIONS (11)
  - Abdominal pain [None]
  - Decreased appetite [None]
  - Impaired self-care [None]
  - Depression [None]
  - Nausea [None]
  - Thinking abnormal [None]
  - Suicidal ideation [None]
  - Apathy [None]
  - Constipation [None]
  - Abdominal distension [None]
  - Social avoidant behaviour [None]

NARRATIVE: CASE EVENT DATE: 20190508
